FAERS Safety Report 4604891-0 (Version None)
Quarter: 2005Q1

REPORT INFORMATION
  Report Type: 
  Country: None (occurrence: None)
  Receive Date: 20050310
  Receipt Date: 20050310
  Transmission Date: 20050727
  Serious: Yes (Hospitalization)
  Sender: FDA-Public Use
  Company Number: None

PATIENT
  Age: 63 Year
  Sex: Male

DRUGS (2)
  1. TOPAMAX [Suspect]
     Dosage: SEE IMAGE
     Route: 048
  2. METOPROLOL TARTRATE [Concomitant]

REACTIONS (2)
  - CONSTIPATION [None]
  - MANIA [None]
